FAERS Safety Report 7609495-3 (Version None)
Quarter: 2011Q3

REPORT INFORMATION
  Report Type: 
  Country: None (occurrence: None)
  Receive Date: 20110714
  Receipt Date: 20110707
  Transmission Date: 20111222
  Serious: Yes (Hospitalization)
  Sender: FDA-Public Use
  Company Number: GXKR2011DE02229

PATIENT
  Age: 26 Year
  Sex: Male
  Weight: 90 kg

DRUGS (14)
  1. CLOZAPINE [Suspect]
     Dosage: 400 MG/DAY
     Route: 048
     Dates: start: 20100106, end: 20100114
  2. CLOZAPINE [Suspect]
     Dosage: 100 MG/DAY
     Route: 048
     Dates: start: 20100201, end: 20100211
  3. CLOZAPINE [Suspect]
     Dosage: 50 MG/DAY
     Route: 048
     Dates: start: 20100212, end: 20100218
  4. CLOZAPINE [Suspect]
     Dosage: 450 MG/DAY
     Route: 048
     Dates: start: 20091014, end: 20091115
  5. CLOZAPINE [Suspect]
     Dosage: 300 MG/DAY
     Route: 048
     Dates: start: 20100115, end: 20100118
  6. CLOZAPINE [Suspect]
     Dosage: 150 MG/DAY
     Route: 048
     Dates: start: 20100128, end: 20100131
  7. CLOZAPINE [Suspect]
     Dosage: 350 MG/DAY
     Route: 048
     Dates: start: 20090901, end: 20091001
  8. CLOZAPINE [Suspect]
     Dosage: 250 MG/DAY
     Route: 048
     Dates: start: 20100119, end: 20100125
  9. CLOZAPINE [Suspect]
     Dosage: 400 MG/DAY
     Route: 048
     Dates: start: 20091002, end: 20091013
  10. CLOZAPINE [Suspect]
     Dosage: 500 MG/DAY
     Route: 048
     Dates: start: 20091116, end: 20091209
  11. CLOZAPINE [Suspect]
     Dosage: 200 MG/DAY
     Route: 048
     Dates: start: 20100126, end: 20100127
  12. CLOZAPINE [Suspect]
     Dosage: 12.5 MG - 300 MG/DAY
     Route: 048
     Dates: end: 20090831
  13. CLOZAPINE [Suspect]
     Dosage: 550 MG/DAY
     Route: 048
     Dates: start: 20091210, end: 20100105
  14. EUTHYROX [Concomitant]
     Dosage: 200 UG, UNK
     Route: 048

REACTIONS (2)
  - SLEEP PARALYSIS [None]
  - MOVEMENT DISORDER [None]
